FAERS Safety Report 5519357-3 (Version None)
Quarter: 2007Q4

REPORT INFORMATION
  Report Type: 
  Country: None (occurrence: None)
  Receive Date: 20071114
  Receipt Date: 20070806
  Transmission Date: 20080405
  Serious: Yes (Hospitalization)
  Sender: FDA-Public Use
  Company Number: 2007PV000032

PATIENT
  Age: 52 Year
  Sex: Female

DRUGS (15)
  1. DEPOCYT [Suspect]
     Indication: B-CELL LYMPHOMA
     Dosage: 50 MG;1X;INTH
     Route: 037
     Dates: start: 20060726, end: 20060809
  2. CYCLOPHOSPHAMIDE [Concomitant]
  3. DOXORUBICIN HCL [Concomitant]
  4. ETOPOSIDE [Concomitant]
  5. ONCOVIN [Concomitant]
  6. DELTISON [Concomitant]
  7. MABTHERA [Concomitant]
  8. PRIMPERAN INJ [Concomitant]
  9. OMEPRAZOLE [Concomitant]
  10. ACETAMINOPHEN [Concomitant]
  11. EUSAPRIM FORTE [Concomitant]
  12. MORPHINE [Concomitant]
  13. DIFLUCAN [Concomitant]
  14. ACYCLOVIR [Concomitant]
  15. MORPHINE [Concomitant]

REACTIONS (7)
  - ASTHENIA [None]
  - FAECAL INCONTINENCE [None]
  - HERPES VIRUS INFECTION [None]
  - HYPOAESTHESIA [None]
  - MUSCULAR WEAKNESS [None]
  - PARESIS ANAL SPHINCTER [None]
  - URINARY RETENTION [None]
